FAERS Safety Report 8523192-1 (Version None)
Quarter: 2012Q3

REPORT INFORMATION
  Report Type: 
  Country: None (occurrence: None)
  Receive Date: 20120709
  Receipt Date: 20120622
  Transmission Date: 20120928
  Serious: Yes (Death, Other)
  Sender: FDA-Public Use
  Company Number: ADE 12-067

PATIENT
  Age: 69 Year
  Sex: Female
  Weight: 83.0083 kg

DRUGS (8)
  1. HEPARIN SODIUM [Suspect]
     Indication: CORONARY ARTERY BYPASS
     Dosage: NOT SPECIFIED
     Dates: start: 20120419
  2. HEPARIN SODIUM [Suspect]
  3. ARGATROBAN [Concomitant]
  4. LASIX [Concomitant]
  5. NOVOLIN N [Concomitant]
  6. ZOSYN [Concomitant]
  7. PROTONIX [Concomitant]
  8. VANCOCIN HYDROCHLORIDE [Concomitant]

REACTIONS (1)
  - PLATELET COUNT DECREASED [None]
